FAERS Safety Report 11128579 (Version 1)
Quarter: 2015Q2

REPORT INFORMATION
  Report Type: Spontaneous
  Country: US (occurrence: None)
  Receive Date: 20150520
  Receipt Date: 20150520
  Transmission Date: 20150821
  Serious: Yes (Hospitalization)
  Sender: FDA-Public Use
  Company Number: None

PATIENT
  Age: 66 Year
  Sex: Male

DRUGS (1)
  1. PREGABALIN. [Suspect]
     Active Substance: PREGABALIN
     Dosage: MG, BID, PO
     Route: 048
     Dates: start: 20141016

REACTIONS (3)
  - Asthenia [None]
  - Diplopia [None]
  - Hallucination [None]

NARRATIVE: CASE EVENT DATE: 20141016
